FAERS Safety Report 24753562 (Version 3)
Quarter: 2025Q1

REPORT INFORMATION
  Report Type: Report from Study
  Country: CA (occurrence: CA)
  Receive Date: 20241219
  Receipt Date: 20250116
  Transmission Date: 20250409
  Serious: Yes (Other)
  Sender: BIOGEN
  Company Number: CA-BIOGEN-2024BI01294096

PATIENT
  Sex: Female

DRUGS (1)
  1. TECFIDERA [Suspect]
     Active Substance: DIMETHYL FUMARATE
     Indication: Multiple sclerosis
     Route: 050
     Dates: start: 20130619, end: 20250110

REACTIONS (4)
  - Cerebrovascular accident [Unknown]
  - Osteoporosis [Unknown]
  - Ankle fracture [Unknown]
  - Lymphocyte count decreased [Unknown]
